FAERS Safety Report 9381620 (Version 3)
Quarter: 2013Q3

REPORT INFORMATION
  Report Type: Spontaneous
  Country: FR (occurrence: FR)
  Receive Date: 20130703
  Receipt Date: 20130717
  Transmission Date: 20140515
  Serious: Yes (Hospitalization)
  Sender: FDA-Public Use
  Company Number: FR-PFIZER INC-2013193706

PATIENT
  Age: 79 Year
  Sex: Female

DRUGS (4)
  1. TAZOCILLINE [Suspect]
     Indication: NEUTROPENIA
     Dosage: 4 G, 3X/DAY
     Route: 042
     Dates: start: 20130516, end: 20130529
  2. PREVISCAN [Suspect]
     Indication: PULMONARY EMBOLISM
     Dosage: UNK
     Route: 048
     Dates: start: 20130525, end: 20130528
  3. CORTANCYL [Concomitant]
     Indication: SYSTEMIC LUPUS ERYTHEMATOSUS
     Dosage: UNK
     Route: 048
     Dates: start: 2008
  4. LOVENOX [Concomitant]
     Indication: PULMONARY EMBOLISM
     Dosage: UNK

REACTIONS (1)
  - Liver injury [Recovered/Resolved]
